FAERS Safety Report 5810721-1 (Version None)
Quarter: 2008Q3

REPORT INFORMATION
  Report Type: 
  Country: None (occurrence: None)
  Receive Date: 20080715
  Receipt Date: 20080710
  Transmission Date: 20090109
  Serious: Yes (Hospitalization)
  Sender: FDA-Public Use
  Company Number: JP-ABBOTT-08P-087-0456197-00

PATIENT
  Sex: Female
  Weight: 51 kg

DRUGS (3)
  1. KLARICID TABLETS [Suspect]
     Indication: SKIN DISORDER
     Route: 048
     Dates: start: 20080401, end: 20080602
  2. OXATOMIDE [Suspect]
     Indication: SKIN DISORDER
     Route: 048
     Dates: start: 20080401, end: 20080602
  3. PANTETHINE [Concomitant]
     Indication: SKIN DISORDER
     Route: 048
     Dates: start: 20080401, end: 20080602

REACTIONS (7)
  - ALANINE AMINOTRANSFERASE INCREASED [None]
  - ASPARTATE AMINOTRANSFERASE INCREASED [None]
  - BLOOD ALKALINE PHOSPHATASE INCREASED [None]
  - EOSINOPHIL COUNT INCREASED [None]
  - GAMMA-GLUTAMYLTRANSFERASE INCREASED [None]
  - HEPATIC FUNCTION ABNORMAL [None]
  - MALAISE [None]
